FAERS Safety Report 24063210 (Version 2)
Quarter: 2024Q3

REPORT INFORMATION
  Report Type: Spontaneous
  Country: US (occurrence: None)
  Receive Date: 20240709
  Receipt Date: 20240813
  Transmission Date: 20241017
  Serious: No
  Sender: ASTRAZENECA
  Company Number: 2024A146037

PATIENT
  Age: 25941 Day
  Sex: Female

DRUGS (3)
  1. FASENRA [Suspect]
     Active Substance: BENRALIZUMAB
     Dosage: EVERY EIGHT WEEKS
     Route: 058
     Dates: start: 202312
  2. FASENRA [Suspect]
     Active Substance: BENRALIZUMAB
     Dosage: EVERY EIGHT WEEKS
     Route: 058
     Dates: start: 20240610
  3. MACROBID [Concomitant]
     Active Substance: NITROFURANTOIN\NITROFURANTOIN MONOHYDRATE

REACTIONS (5)
  - Dysuria [Unknown]
  - Urinary tract infection [Unknown]
  - Analgesic therapy [Unknown]
  - Abdominal pain upper [Unknown]
  - Urine abnormality [Unknown]

NARRATIVE: CASE EVENT DATE: 20240101
